FAERS Safety Report 7968791-0 (Version None)
Quarter: 2011Q4

REPORT INFORMATION
  Report Type: 
  Country: None (occurrence: None)
  Receive Date: 20111208
  Receipt Date: 20111122
  Transmission Date: 20120403
  Serious: Yes (Hospitalization)
  Sender: FDA-Public Use
  Company Number: 2011120006

PATIENT
  Age: 21 Year
  Sex: Female

DRUGS (7)
  1. FERROUS CITRATE [Concomitant]
  2. PREDNISOLONE SODIUM SUCCINATE INJ [Concomitant]
  3. DEPAS (ETIZOLAM) [Suspect]
     Indication: DEPRESSION
     Dosage: (1 MG), ORAL
     Route: 048
     Dates: start: 20100301, end: 20110804
  4. AZATHIOPRINE SODIUM (AZATHIOPRINE SODIUM) [Concomitant]
  5. MESALAMINE [Suspect]
     Indication: COLITIS ULCERATIVE
     Dosage: (3600 MG), ORAL
     Route: 048
     Dates: start: 20100601, end: 20110804
  6. OMEPRAZOLE [Suspect]
     Indication: COLITIS ULCERATIVE
     Dosage: (20 MG), ORAL
     Route: 048
     Dates: start: 20060101, end: 20110804
  7. STREPTOCOCCUS FAECALIS (STREPTOCOCCUS FAECALIS) [Concomitant]

REACTIONS (7)
  - PYREXIA [None]
  - PNEUMOCYSTIS JIROVECI PNEUMONIA [None]
  - COUGH [None]
  - LYMPHOCYTE STIMULATION TEST POSITIVE [None]
  - PNEUMONIA [None]
  - LUNG DISORDER [None]
  - LISTLESS [None]
